FAERS Safety Report 12225461 (Version 1)
Quarter: 2016Q1

REPORT INFORMATION
  Report Type: Spontaneous
  Country: ES (occurrence: ES)
  Receive Date: 20160331
  Receipt Date: 20160331
  Transmission Date: 20160526
  Serious: Yes (Death, Hospitalization, Other)
  Sender: FDA-Public Use
  Company Number: ES-VIIV HEALTHCARE LIMITED-ES2016040006

PATIENT
  Age: 42 Year
  Sex: Female

DRUGS (2)
  1. TRIUMEQ [Suspect]
     Active Substance: ABACAVIR SULFATE\DOLUTEGRAVIR SODIUM\LAMIVUDINE
     Indication: ACUTE HIV INFECTION
     Dosage: 1 DF, QD 1 TABLET EVERY 24 HOURS
     Route: 048
     Dates: start: 20151028, end: 20151217
  2. CELSENTRI [Suspect]
     Active Substance: MARAVIROC
     Indication: ACUTE HIV INFECTION
     Dosage: 300 MG, BID 1 TABLET, 2 TIMES A DAY
     Route: 048
     Dates: start: 20151104, end: 20151216

REACTIONS (2)
  - Progressive multifocal leukoencephalopathy [Fatal]
  - Immune reconstitution inflammatory syndrome [Fatal]

NARRATIVE: CASE EVENT DATE: 20151115
